FAERS Safety Report 16548657 (Version 6)
Quarter: 2019Q3

REPORT INFORMATION
  Report Type: Spontaneous
  Country: JP (occurrence: JP)
  Receive Date: 20190709
  Receipt Date: 20190923
  Transmission Date: 20191004
  Serious: Yes (Life-Threatening, Other)
  Sender: FDA-Public Use
  Company Number: JP-PFIZER INC-2019289749

PATIENT
  Age: 64 Year
  Sex: Male

DRUGS (4)
  1. PACLITAXEL. [Suspect]
     Active Substance: PACLITAXEL
     Indication: GASTRIC CANCER
     Dosage: 80 MG/M2 (130 MG), CYCLIC
     Dates: start: 2017, end: 2017
  2. G-CSF [Concomitant]
     Active Substance: GRANULOCYTE COLONY-STIMULATING FACTOR NOS
     Indication: GASTRIC CANCER
     Dosage: UNK
  3. PACLITAXEL. [Suspect]
     Active Substance: PACLITAXEL
     Indication: METASTASES TO PERITONEUM
  4. RAMUCIRUMAB [Concomitant]
     Active Substance: RAMUCIRUMAB
     Indication: GASTRIC CANCER
     Dosage: 8 MG/KG (520 MG), CYCLIC

REACTIONS (2)
  - Fatigue [Recovering/Resolving]
  - Haematotoxicity [Recovered/Resolved]

NARRATIVE: CASE EVENT DATE: 2017
